FAERS Safety Report 9784195 (Version 2)
Quarter: 2013Q4

REPORT INFORMATION
  Report Type: Spontaneous
  Country: US (occurrence: US)
  Receive Date: 20131226
  Receipt Date: 20131226
  Transmission Date: 20140711
  Serious: Yes (Disabling)
  Sender: FDA-Public Use
  Company Number: US-GE HEALTHCARE MEDICAL DIAGNOSTICS-OSCN-PR-1203S-0056

PATIENT
  Age: 46 Year
  Sex: Female

DRUGS (3)
  1. OMNISCAN [Suspect]
     Indication: HYPERTENSION
     Route: 042
     Dates: start: 20040206, end: 20040206
  2. OPTIMARK [Suspect]
     Indication: BLOOD PROLACTIN INCREASED
     Route: 042
     Dates: start: 20050831, end: 20050831
  3. OPTIMARK [Suspect]
     Indication: AMENORRHOEA

REACTIONS (1)
  - Nephrogenic systemic fibrosis [Not Recovered/Not Resolved]
